FAERS Safety Report 13920840 (Version 1)
Quarter: 2017Q3

REPORT INFORMATION
  Report Type: Spontaneous
  Country: US (occurrence: US)
  Receive Date: 20170830
  Receipt Date: 20170830
  Transmission Date: 20171127
  Serious: Yes (Other)
  Sender: FDA-Public Use
  Company Number: None

PATIENT
  Age: 70 Year
  Sex: Female
  Weight: 73.35 kg

DRUGS (7)
  1. COENZYME Q10 [Concomitant]
     Active Substance: UBIDECARENONE
  2. LEVOTHYROXINE. [Concomitant]
     Active Substance: LEVOTHYROXINE
  3. SCHISANDRA [Concomitant]
  4. ASHWAGANDHA [Concomitant]
     Active Substance: HERBALS
  5. MILK THISTLE XTRA [Concomitant]
  6. AFINITOR [Suspect]
     Active Substance: EVEROLIMUS
     Indication: BREAST CANCER
     Route: 048
     Dates: start: 20170608, end: 20170830
  7. FASLODEX [Concomitant]
     Active Substance: FULVESTRANT

REACTIONS (1)
  - Disease progression [None]
